FAERS Safety Report 7256224-1 (Version None)
Quarter: 2011Q1

REPORT INFORMATION
  Report Type: 
  Country: None (occurrence: None)
  Receive Date: 20110129
  Receipt Date: 20100517
  Transmission Date: 20110831
  Serious: No
  Sender: FDA-Public Use
  Company Number: US-ABBOTT-10P-163-0645901-00

PATIENT
  Sex: Female
  Weight: 88.53 kg

DRUGS (5)
  1. HUMIRA [Suspect]
     Indication: RHEUMATOID ARTHRITIS
     Route: 058
     Dates: end: 20100201
  2. SYNTHROID [Concomitant]
     Indication: HYPOTHYROIDISM
     Dosage: NOT SURE OF STRENGTH
     Route: 048
  3. COZAAR [Concomitant]
     Indication: HYPERTENSION
     Dosage: NOT SURE OF STRENGTH
     Route: 048
  4. HUMIRA [Suspect]
     Route: 058
     Dates: start: 20100401
  5. HYDROCHLOROTHIAZIDE [Concomitant]
     Indication: HYPERTENSION
     Dosage: NOT SURE OF STRENGTH
     Route: 048

REACTIONS (3)
  - INFLUENZA [None]
  - PNEUMONIA [None]
  - EXPIRED DRUG ADMINISTERED [None]
